FAERS Safety Report 4369874-7 (Version None)
Quarter: 2004Q2

REPORT INFORMATION
  Report Type: 
  Country: None (occurrence: None)
  Receive Date: 20040527
  Receipt Date: 20040510
  Transmission Date: 20050107
  Serious: Yes (Other)
  Sender: FDA-Public Use
  Company Number: GBS040514898

PATIENT
  Age: 50 Year
  Sex: Male

DRUGS (2)
  1. CIALIS [Suspect]
     Indication: ERECTILE DYSFUNCTION
  2. VIAGRA [Concomitant]

REACTIONS (3)
  - AGGRESSION [None]
  - DEPRESSION SUICIDAL [None]
  - MAJOR DEPRESSION [None]
